FAERS Safety Report 14906352 (Version 1)
Quarter: 2018Q2

REPORT INFORMATION
  Report Type: Spontaneous
  Country: US (occurrence: US)
  Receive Date: 20180517
  Receipt Date: 20180517
  Transmission Date: 20180711
  Serious: No
  Sender: FDA-Public Use
  Company Number: US-SA-2018SA106232

PATIENT
  Age: 75 Year
  Sex: Female
  Weight: 90.26 kg

DRUGS (17)
  1. ROPINIROLE. [Concomitant]
     Active Substance: ROPINIROLE
     Dosage: STRENGTH: 0.25MG
     Route: 065
     Dates: start: 20160226
  2. VITAMIN D/CALCIUM [Concomitant]
     Dosage: CALCIUM WITH VITAMIN D 600 MG (1,500 MO)-400 UNIT
     Route: 065
     Dates: start: 20120802
  3. SOLOSTAR [Suspect]
     Active Substance: DEVICE
  4. LANTUS SOLOSTAR [Suspect]
     Active Substance: INSULIN GLARGINE
     Dosage: 26 UNITS AM/10 UNITS PM
     Route: 051
  5. SIMVASTATIN. [Concomitant]
     Active Substance: SIMVASTATIN
     Dosage: STRENGTH: 20MG
     Route: 065
     Dates: start: 20120529
  6. FLUTICASONE. [Concomitant]
     Active Substance: FLUTICASONE
     Dosage: STRENGTH: 50MCG
     Route: 065
     Dates: start: 20171109
  7. OMEPRAZOLE. [Concomitant]
     Active Substance: OMEPRAZOLE
     Dosage: STRENGTH: 40MG
     Route: 065
     Dates: start: 20160122
  8. PROAIR HFA [Concomitant]
     Active Substance: ALBUTEROL SULFATE
     Dosage: 90 MCG/ACTUATION AEROSOL INHALER
     Route: 065
     Dates: start: 20160122
  9. MELOXICAM. [Concomitant]
     Active Substance: MELOXICAM
     Dosage: STRENGTH: 15MG
     Route: 065
     Dates: start: 20160401
  10. MONTELUKAST [Concomitant]
     Active Substance: MONTELUKAST SODIUM
     Dosage: STRENGTH: 10MG
     Route: 065
     Dates: start: 20160226
  11. JANUMET [Concomitant]
     Active Substance: METFORMIN HYDROCHLORIDE\SITAGLIPTIN PHOSPHATE
     Dosage: STRENGTH: 50/1000MG
     Route: 065
     Dates: start: 20120529
  12. LEVOTHYROXINE. [Concomitant]
     Active Substance: LEVOTHYROXINE
     Dosage: STRENGTH: 75MCG
     Route: 065
     Dates: start: 20171012
  13. TELMISARTAN. [Concomitant]
     Active Substance: TELMISARTAN
     Dosage: STRENGTH:80MG
     Route: 065
     Dates: start: 20140513
  14. SOLOSTAR [Suspect]
     Active Substance: DEVICE
  15. LANTUS SOLOSTAR [Suspect]
     Active Substance: INSULIN GLARGINE
     Dosage: 26 UNITS AM/10 UNITS PM
     Route: 051
  16. AMLODIPINE [Concomitant]
     Active Substance: AMLODIPINE BESYLATE
     Dosage: STRENGTH: 10MG
     Route: 065
     Dates: start: 20171107
  17. ASPIRIN. [Concomitant]
     Active Substance: ASPIRIN
     Dosage: STRENGTH: 81MG
     Route: 065
     Dates: start: 20120221

REACTIONS (4)
  - Carpal tunnel syndrome [Unknown]
  - Device issue [Unknown]
  - Injection site discolouration [Unknown]
  - Product use issue [Unknown]
